FAERS Safety Report 6000687-6 (Version None)
Quarter: 2008Q4

REPORT INFORMATION
  Report Type: 
  Country: None (occurrence: None)
  Receive Date: 20081215
  Receipt Date: 20081209
  Transmission Date: 20090506
  Serious: Yes (Life-Threatening)
  Sender: FDA-Public Use
  Company Number: FR-ROCHE-564895

PATIENT
  Sex: Male
  Weight: 1.7 kg

DRUGS (6)
  1. VALIUM [Suspect]
     Indication: EPILEPSY
     Route: 064
     Dates: end: 20080408
  2. ZYPREXA [Suspect]
     Indication: PSYCHIATRIC SYMPTOM
     Dosage: DOSAGE REGIMEN: 1 DOSE DAILY
     Dates: end: 20080408
  3. DI-HYDAN [Suspect]
     Indication: EPILEPSY
     Dates: end: 20080408
  4. ALEPSAL [Suspect]
     Indication: EPILEPSY
     Dates: end: 20080408
  5. LAMICTAL [Suspect]
     Indication: EPILEPSY
     Dates: end: 20080408
  6. URBANYL [Suspect]
     Indication: EPILEPSY

REACTIONS (3)
  - BRADYCARDIA [None]
  - FOETAL GROWTH RETARDATION [None]
  - PREMATURE BABY [None]
